FAERS Safety Report 16242047 (Version 2)
Quarter: 2019Q2

REPORT INFORMATION
  Report Type: Spontaneous
  Country: SE (occurrence: SE)
  Receive Date: 20190426
  Receipt Date: 20190508
  Transmission Date: 20190711
  Serious: Yes (Life-Threatening, Hospitalization, Other)
  Sender: FDA-Public Use
  Company Number: SE-ALKEM LABORATORIES LIMITED-SE-ALKEM-2019-03728

PATIENT
  Age: 55 Year
  Sex: Male

DRUGS (1)
  1. CAPECITABINE. [Suspect]
     Active Substance: CAPECITABINE
     Indication: ADJUVANT THERAPY
     Dosage: 2500 MILLIGRAM, BID (FIVE 500 MG TABLETS)
     Route: 048

REACTIONS (3)
  - Cardiogenic shock [Recovered/Resolved]
  - Stress cardiomyopathy [Recovered/Resolved]
  - Acute myocardial infarction [Recovered/Resolved]
